FAERS Safety Report 17148915 (Version 1)
Quarter: 2019Q4

REPORT INFORMATION
  Report Type: Spontaneous
  Country: BR (occurrence: BR)
  Receive Date: 20191213
  Receipt Date: 20191213
  Transmission Date: 20200122
  Serious: Yes (Other)
  Sender: FDA-Public Use
  Company Number: BR-AMGEN-BRASP2019206388

PATIENT
  Age: 84 Year
  Sex: Female

DRUGS (3)
  1. ENBREL [Suspect]
     Active Substance: ETANERCEPT
     Indication: PRODUCT USED FOR UNKNOWN INDICATION
     Dosage: UNK
     Route: 065
     Dates: end: 20191205
  2. METFORMIN [Suspect]
     Active Substance: METFORMIN HYDROCHLORIDE
     Indication: PRODUCT USED FOR UNKNOWN INDICATION
     Dosage: UNK
     Route: 065
  3. GLIBENCLAMIDE [Suspect]
     Active Substance: GLYBURIDE
     Indication: PRODUCT USED FOR UNKNOWN INDICATION
     Dosage: UNK
     Route: 065

REACTIONS (10)
  - Diabetes mellitus inadequate control [Recovering/Resolving]
  - Weight decreased [Unknown]
  - Decreased immune responsiveness [Unknown]
  - Influenza [Unknown]
  - Diarrhoea [Recovering/Resolving]
  - Gastrointestinal infection [Unknown]
  - Decreased appetite [Recovering/Resolving]
  - Mobility decreased [Unknown]
  - Dysphagia [Unknown]
  - Oesophageal candidiasis [Unknown]
